FAERS Safety Report 5173840-1 (Version None)
Quarter: 2006Q4

REPORT INFORMATION
  Report Type: 
  Country: None (occurrence: None)
  Receive Date: 20061214
  Receipt Date: 20061208
  Transmission Date: 20070319
  Serious: Yes (Other)
  Sender: FDA-Public Use
  Company Number: JP-GLAXOSMITHKLINE-B0450303A

PATIENT

DRUGS (3)
  1. PAXIL [Suspect]
     Indication: SCHIZOPHRENIA
     Dosage: 20MG PER DAY
     Dates: start: 20061018
  2. RIVOTRIL [Concomitant]
     Dosage: .5MG TWICE PER DAY
  3. PROMETHAZINE HCL [Concomitant]
     Dosage: 25MG PER DAY

REACTIONS (4)
  - CONVULSION [None]
  - DRUG EXPOSURE DURING PREGNANCY [None]
  - MUSCULOSKELETAL STIFFNESS [None]
  - MYOCLONUS [None]
